FAERS Safety Report 8510357-8 (Version None)
Quarter: 2012Q3

REPORT INFORMATION
  Report Type: 
  Country: None (occurrence: None)
  Receive Date: 20120713
  Receipt Date: 20120704
  Transmission Date: 20120928
  Serious: Yes (Other)
  Sender: FDA-Public Use
  Company Number: JP-PFIZER INC-2012166719

PATIENT
  Age: 57 Year
  Sex: Male

DRUGS (4)
  1. CELEBREX [Suspect]
     Indication: NECK PAIN
  2. CELEBREX [Suspect]
     Indication: PARALYSIS
     Dosage: 200 MG, UNKNOWN/D
     Route: 048
     Dates: start: 20120627, end: 20120702
  3. LULICON [Concomitant]
     Dosage: UNK
  4. LENDORMIN [Suspect]
     Dosage: UNK
     Route: 048

REACTIONS (2)
  - VIITH NERVE PARALYSIS [None]
  - OFF LABEL USE [None]
